FAERS Safety Report 9503854 (Version 1)
Quarter: 2013Q3

REPORT INFORMATION
  Report Type: Spontaneous
  Country: US (occurrence: None)
  Receive Date: 20130905
  Receipt Date: 20130905
  Transmission Date: 20140515
  Serious: Yes (Disabling)
  Sender: FDA-Public Use
  Company Number: None

PATIENT
  Age: 2 Year
  Sex: Male

DRUGS (1)
  1. SINGULAIR [Suspect]
     Indication: ASTHMA
     Dosage: 1    ONCE DAILY  TAKEN BY MOUTH
     Route: 048
     Dates: start: 20020830, end: 20100515

REACTIONS (5)
  - Tic [None]
  - Excessive eye blinking [None]
  - Dysphemia [None]
  - Stress [None]
  - Tardive dyskinesia [None]
